FAERS Safety Report 5366123-8 (Version None)
Quarter: 2007Q2

REPORT INFORMATION
  Report Type: 
  Country: None (occurrence: None)
  Receive Date: 20070516
  Receipt Date: 20061103
  Transmission Date: 20071010
  Serious: Yes (Hospitalization, Other)
  Sender: FDA-Public Use
  Company Number: 256546

PATIENT
  Age: 76 Year
  Sex: Female
  Weight: 114 kg

DRUGS (8)
  1. NOVOSEVEN [Suspect]
     Indication: HAEMORRHAGE INTRACRANIAL
     Dosage: 4.8 MG, TIMES 3 DOSES, INTRAVENOUS
     Route: 042
     Dates: start: 20060827, end: 20060828
  2. NOVOSEVEN [Suspect]
  3. WARFARIN SODIUM [Concomitant]
  4. TOPROL-XL [Concomitant]
  5. ZOCOR [Concomitant]
  6. COLACE (DOCUSATE SODIUM) [Concomitant]
  7. KEPPRA [Concomitant]
  8. DECADRON [Concomitant]

REACTIONS (2)
  - CEREBELLAR INFARCTION [None]
  - CEREBRAL THROMBOSIS [None]
